FAERS Safety Report 5309031-0 (Version None)
Quarter: 2007Q2

REPORT INFORMATION
  Report Type: 
  Country: None (occurrence: None)
  Receive Date: 20070426
  Receipt Date: 20070417
  Transmission Date: 20071010
  Serious: Yes (Hospitalization)
  Sender: FDA-Public Use
  Company Number: IT-ABBOTT-07P-083-0362795-00

PATIENT
  Sex: Female

DRUGS (3)
  1. HUMIRA [Suspect]
     Indication: RHEUMATOID ARTHRITIS
     Route: 058
     Dates: start: 20051214, end: 20061128
  2. HUMIRA [Suspect]
     Route: 058
     Dates: start: 20070201
  3. DICLOFENAC SODIUM [Concomitant]
     Indication: ARTHRALGIA
     Dates: start: 20070105

REACTIONS (3)
  - ARTHRALGIA [None]
  - ARTHROPATHY [None]
  - JOINT INSTABILITY [None]
